FAERS Safety Report 13387465 (Version 1)
Quarter: 2017Q1

REPORT INFORMATION
  Report Type: Spontaneous
  Country: DE (occurrence: DE)
  Receive Date: 20170330
  Receipt Date: 20170330
  Transmission Date: 20170429
  Serious: Yes (Other)
  Sender: FDA-Public Use
  Company Number: ALCN2017DE002223

PATIENT
  Age: 69 Year
  Sex: Female

DRUGS (3)
  1. NOVOPULMON [Concomitant]
     Active Substance: BUDESONIDE
     Indication: ASTHMA
     Dosage: IN SUMMER ONCE DAILY IN THE MORNING AND WINTER TWICE DAILY (IN THE MORNING AND EVENING)
     Route: 065
  2. TRAVATAN [Suspect]
     Active Substance: TRAVOPROST
     Indication: PRODUCT USED FOR UNKNOWN INDICATION
     Dosage: 1 GTT, QD
     Route: 047
  3. CANDESARTAN [Concomitant]
     Active Substance: CANDESARTAN
     Indication: BLOOD PRESSURE INCREASED
     Dosage: 16 MG, QD (IN MORNING)
     Route: 065

REACTIONS (13)
  - Viral infection [Not Recovered/Not Resolved]
  - Cataract [Unknown]
  - Dyspnoea [Unknown]
  - Muscle disorder [Unknown]
  - Blood pressure fluctuation [Unknown]
  - Constipation [Unknown]
  - Dizziness [Unknown]
  - Gliosis [Unknown]
  - Bone disorder [Unknown]
  - Angina pectoris [Unknown]
  - Chest pain [Unknown]
  - Asthma [Unknown]
  - Vertigo [Unknown]
